FAERS Safety Report 24385833 (Version 1)
Quarter: 2024Q4

REPORT INFORMATION
  Report Type: Spontaneous
  Country: MX (occurrence: MX)
  Receive Date: 20241001
  Receipt Date: 20241001
  Transmission Date: 20250114
  Serious: Yes (Other)
  Sender: MYLAN
  Company Number: MX-MYLANLABS-2024M1087695

PATIENT
  Age: 42 Year
  Sex: Male

DRUGS (1)
  1. VIAGRA [Suspect]
     Active Substance: SILDENAFIL CITRATE
     Indication: Product used for unknown indication
     Dosage: 100 MILLIGRAM
     Route: 048

REACTIONS (3)
  - Dyspnoea [Unknown]
  - Arrhythmia [Unknown]
  - Hypertension [Unknown]
